FAERS Safety Report 11568842 (Version 1)
Quarter: 2015Q3

REPORT INFORMATION
  Report Type: Spontaneous
  Country: GB (occurrence: GB)
  Receive Date: 20150929
  Receipt Date: 20150929
  Transmission Date: 20151125
  Serious: Yes (Other)
  Sender: FDA-Public Use
  Company Number: GB-ASTRAZENECA-2015SE91700

PATIENT
  Age: 84 Year
  Sex: Male
  Weight: 74.4 kg

DRUGS (3)
  1. BENDROFLUMETHIAZIDE [Concomitant]
     Active Substance: BENDROFLUMETHIAZIDE
  2. OMEPRAZOLE. [Suspect]
     Active Substance: OMEPRAZOLE
     Indication: BARRETT^S OESOPHAGUS
     Route: 048
     Dates: start: 2014, end: 201509
  3. CANDESARTAN CILEXETIL. [Concomitant]
     Active Substance: CANDESARTAN CILEXETIL

REACTIONS (3)
  - Yellow skin [Unknown]
  - Flatulence [Unknown]
  - Chromaturia [Not Recovered/Not Resolved]
